FAERS Safety Report 9921280 (Version 1)
Quarter: 2014Q1

REPORT INFORMATION
  Report Type: Report from Study
  Country: BR (occurrence: BR)
  Receive Date: 20140225
  Receipt Date: 20140225
  Transmission Date: 20141002
  Serious: Yes (Hospitalization)
  Sender: FDA-Public Use
  Company Number: BR-ROCHE-1355550

PATIENT
  Age: 59 Year
  Sex: Female

DRUGS (4)
  1. XOLAIR [Suspect]
     Indication: ASTHMA
     Dosage: 4 AMPOULES
     Route: 058
     Dates: start: 200909
  2. XOLAIR [Suspect]
     Indication: BRONCHITIS
     Route: 065
     Dates: start: 20121123
  3. FORASEQ (BRAZIL) [Concomitant]
     Dosage: 12/400 UG
     Route: 065
  4. POLARAMINE [Concomitant]
     Route: 065

REACTIONS (1)
  - Emotional disorder [Recovered/Resolved]
